FAERS Safety Report 20900888 (Version 1)
Quarter: 2022Q2

REPORT INFORMATION
  Report Type: Spontaneous
  Country: US (occurrence: None)
  Receive Date: 20220601
  Receipt Date: 20220601
  Transmission Date: 20220721
  Serious: Yes (Hospitalization)
  Sender: FDA-Public Use
  Company Number: None

PATIENT
  Age: 35 Year
  Sex: Male
  Weight: 99.5 kg

DRUGS (7)
  1. CYCLOPHOSPHAMIDE [Suspect]
     Active Substance: CYCLOPHOSPHAMIDE
     Dates: end: 20220317
  2. CYTARABINE [Suspect]
     Active Substance: CYTARABINE
     Dates: end: 20220327
  3. MERCAPTOPURINE [Suspect]
     Active Substance: MERCAPTOPURINE
     Dates: end: 20220330
  4. METHOTREXATE [Suspect]
     Active Substance: METHOTREXATE
     Dates: end: 20220419
  5. ONCASPAR [Suspect]
     Active Substance: PEGASPARGASE
     Dates: end: 20220331
  6. RITUXIMAB [Suspect]
     Active Substance: RITUXIMAB
     Dates: end: 20220325
  7. VINCRISTINE SULFATE [Suspect]
     Active Substance: VINCRISTINE SULFATE

REACTIONS (4)
  - Fall [None]
  - Asthenia [None]
  - Musculoskeletal disorder [None]
  - Therapy interrupted [None]

NARRATIVE: CASE EVENT DATE: 20220528
